FAERS Safety Report 10879280 (Version 1)
Quarter: 2015Q1

REPORT INFORMATION
  Report Type: Spontaneous
  Country: GB (occurrence: GB)
  Receive Date: 20150302
  Receipt Date: 20150302
  Transmission Date: 20150721
  Serious: Yes (Hospitalization, Other)
  Sender: FDA-Public Use
  Company Number: GB-GLAXOSMITHKLINE-GB2015025142

PATIENT
  Age: 46 Year
  Sex: Male
  Weight: 54.42 kg

DRUGS (7)
  1. DULOXETINE [Concomitant]
     Active Substance: DULOXETINE
  2. GABAPENTIN. [Suspect]
     Active Substance: GABAPENTIN
     Indication: BACK PAIN
     Dosage: 300 MG, TID
     Route: 048
     Dates: start: 20150204, end: 20150213
  3. SERETIDE [Concomitant]
     Active Substance: FLUTICASONE FUROATE\SALMETEROL XINAFOATE
  4. TIOTROPIUM [Concomitant]
     Active Substance: TIOTROPIUM
  5. LAMOTRIGINE. [Suspect]
     Active Substance: LAMOTRIGINE
  6. MORPHINE SULFATE. [Concomitant]
     Active Substance: MORPHINE SULFATE
  7. FORCEVAL [Concomitant]
     Active Substance: FOLIC ACID\IRON\MINERALS\VITAMINS

REACTIONS (3)
  - Epilepsy [Unknown]
  - Drug interaction [Unknown]
  - Convulsive threshold lowered [Recovered/Resolved]

NARRATIVE: CASE EVENT DATE: 20150206
